FAERS Safety Report 13668521 (Version 2)
Quarter: 2017Q3

REPORT INFORMATION
  Report Type: Spontaneous
  Country: FR (occurrence: FR)
  Receive Date: 20170620
  Receipt Date: 20170726
  Transmission Date: 20171127
  Serious: Yes (Other)
  Sender: FDA-Public Use
  Company Number: FR-009507513-1706FRA007286

PATIENT
  Age: 59 Year
  Sex: Male

DRUGS (13)
  1. OLANZAPINE. [Suspect]
     Active Substance: OLANZAPINE
     Dosage: 10 MG, QD
     Route: 048
     Dates: start: 20170603
  2. THERALENE [Suspect]
     Active Substance: TRIMEPRAZINE
     Dosage: 10 MG, QD
     Route: 048
     Dates: start: 20170603, end: 20170604
  3. OLANZAPINE. [Suspect]
     Active Substance: OLANZAPINE
     Indication: SCHIZOPHRENIA
     Dosage: 20 MG, QD
     Route: 048
     Dates: start: 2014, end: 20170523
  4. DEPAKINE CHRONO [Concomitant]
     Active Substance: VALPROATE SODIUM
     Dosage: 500 MG, 3/DAY
  5. URBANYL [Concomitant]
     Active Substance: CLOBAZAM
     Dosage: 10 MG, 4/DAY
  6. INTELENCE [Suspect]
     Active Substance: ETRAVIRINE
     Indication: HIV INFECTION
     Dosage: 200 MG, BID
     Route: 048
     Dates: start: 20070828, end: 20170602
  7. SULFARLEM [Concomitant]
     Active Substance: ANETHOLTRITHION
     Dosage: 12.5 MG, QD
  8. OLANZAPINE. [Suspect]
     Active Substance: OLANZAPINE
     Dosage: 15 MG, QD
     Route: 048
     Dates: start: 20170524, end: 20170602
  9. NORVIR [Suspect]
     Active Substance: RITONAVIR
     Indication: HIV INFECTION
     Dosage: 100 MG, BID
     Route: 048
     Dates: start: 20060127, end: 20170602
  10. ISENTRESS [Suspect]
     Active Substance: RALTEGRAVIR POTASSIUM
     Indication: HIV INFECTION
     Dosage: 400 MG, BID
     Route: 048
     Dates: start: 20070828, end: 20170602
  11. THERALENE [Suspect]
     Active Substance: TRIMEPRAZINE
     Dosage: 15 MG, QD
     Route: 048
     Dates: start: 20170128, end: 20170602
  12. PREZISTA [Suspect]
     Active Substance: DARUNAVIR ETHANOLATE
     Indication: HIV INFECTION
     Dosage: 600 MG, BID
     Route: 048
     Dates: start: 20070828, end: 20170602
  13. THERALENE [Suspect]
     Active Substance: TRIMEPRAZINE
     Dosage: 5 MG, QD
     Route: 048
     Dates: start: 20170605

REACTIONS (1)
  - Orthostatic hypotension [Recovered/Resolved]

NARRATIVE: CASE EVENT DATE: 20170521
